FAERS Safety Report 22229146 (Version 1)
Quarter: 2023Q2

REPORT INFORMATION
  Report Type: Spontaneous
  Country: US (occurrence: US)
  Receive Date: 20230419
  Receipt Date: 20230419
  Transmission Date: 20230722
  Serious: No
  Sender: FDA-Public Use
  Company Number: US-ALLERGAN-2206056US

PATIENT
  Age: 57 Year
  Sex: Male

DRUGS (2)
  1. RESTASIS [Suspect]
     Active Substance: CYCLOSPORINE
     Indication: Lacrimation increased
     Dosage: UNK
     Dates: start: 202202
  2. Eye injection [Concomitant]
     Indication: Retinal tear
     Dosage: ONCE EVERY TEN WEEKS

REACTIONS (3)
  - Multiple use of single-use product [Unknown]
  - Off label use [Unknown]
  - Vision blurred [Recovering/Resolving]

NARRATIVE: CASE EVENT DATE: 20220201
